FAERS Safety Report 4681495-5 (Version None)
Quarter: 2005Q2

REPORT INFORMATION
  Report Type: 
  Country: None (occurrence: None)
  Receive Date: 20050602
  Receipt Date: 20050520
  Transmission Date: 20051028
  Serious: No
  Sender: FDA-Public Use
  Company Number: US015322

PATIENT
  Age: 24 Month
  Sex: Male

DRUGS (1)
  1. ACTIQ [Suspect]
     Dosage: 600 UG ONCE BUCCAL
     Route: 002
     Dates: start: 20050520, end: 20050520

REACTIONS (1)
  - ACCIDENTAL EXPOSURE [None]
